FAERS Safety Report 6762416-8 (Version None)
Quarter: 2010Q2

REPORT INFORMATION
  Report Type: 
  Country: None (occurrence: None)
  Receive Date: 20100609
  Receipt Date: 20100531
  Transmission Date: 20101027
  Serious: Yes (Hospitalization)
  Sender: FDA-Public Use
  Company Number: FR-ROCHE-707287

PATIENT
  Sex: Male

DRUGS (4)
  1. CELLCEPT [Suspect]
     Route: 048
  2. PREVISCAN [Concomitant]
     Route: 048
     Dates: end: 20100506
  3. CORTANCYL [Concomitant]
     Route: 048
  4. TACROLIMUS HYDRATE [Concomitant]
     Route: 048

REACTIONS (2)
  - DIARRHOEA [None]
  - INTERNATIONAL NORMALISED RATIO INCREASED [None]
